FAERS Safety Report 9125357 (Version 1)
Quarter: 2013Q1

REPORT INFORMATION
  Report Type: Spontaneous
  Country: US (occurrence: US)
  Receive Date: 20130117
  Receipt Date: 20130117
  Transmission Date: 20140127
  Serious: Yes (Hospitalization)
  Sender: FDA-Public Use
  Company Number: US-BRISTOL-MYERS SQUIBB COMPANY-17013491

PATIENT
  Age: 53 Year
  Sex: Female
  Weight: 59.86 kg

DRUGS (1)
  1. YERVOY [Suspect]
     Indication: METASTATIC MALIGNANT MELANOMA
     Dosage: 3 INF:19SEP-2012,9OCT2012
     Route: 042

REACTIONS (1)
  - Colitis [Recovered/Resolved]
